FAERS Safety Report 16765547 (Version 1)
Quarter: 2019Q3

REPORT INFORMATION
  Report Type: Spontaneous
  Country: US (occurrence: US)
  Receive Date: 20190903
  Receipt Date: 20190903
  Transmission Date: 20191005
  Serious: No
  Sender: FDA-Public Use
  Company Number: US-CIPLA LTD.-2019US05855

PATIENT

DRUGS (4)
  1. TROSPIUM CHLORIDE. [Suspect]
     Active Substance: TROSPIUM CHLORIDE
     Indication: HYPERTONIC BLADDER
     Dosage: UNK, TAKING PROBABLY SINCE 3 TO 4 YEARS
     Route: 065
  2. METOPROLOL. [Concomitant]
     Active Substance: METOPROLOL
     Indication: PRODUCT USED FOR UNKNOWN INDICATION
     Dosage: UNK, BID (TWICE A DAY)
     Route: 065
  3. TROSPIUM CHLORIDE. [Suspect]
     Active Substance: TROSPIUM CHLORIDE
     Dosage: 2 DOSAGE FORM, BID, (2 PILLS OF TROSPIUM CHLORIDE IN MORNING AND 2 PILLS IN THE EVENING)
     Route: 048
     Dates: start: 2019
  4. ATORVASTATIN [Concomitant]
     Active Substance: ATORVASTATIN
     Indication: HYPERCHOLESTEROLAEMIA
     Dosage: UNK, QD (ONCE A DAY)
     Route: 065

REACTIONS (4)
  - Product administration error [Unknown]
  - Dry mouth [Recovered/Resolved]
  - Dysarthria [Recovered/Resolved]
  - Mouth swelling [Recovered/Resolved]

NARRATIVE: CASE EVENT DATE: 2019
